FAERS Safety Report 5195780-4 (Version None)
Quarter: 2007Q1

REPORT INFORMATION
  Report Type: 
  Country: None (occurrence: None)
  Receive Date: 20070102
  Receipt Date: 20061218
  Transmission Date: 20070707
  Serious: Yes (Hospitalization)
  Sender: FDA-Public Use
  Company Number: US-ELI_LILLY_AND_COMPANY-US200608003830

PATIENT
  Age: 29 Year
  Sex: Female
  Weight: 58.956 kg

DRUGS (1)
  1. ZYPREXA [Suspect]

REACTIONS (7)
  - ANHEDONIA [None]
  - DIABETES MELLITUS [None]
  - DIABETIC COMA [None]
  - DIABETIC KETOACIDOSIS [None]
  - DRUG EXPOSURE DURING PREGNANCY [None]
  - HAEMORRHAGE [None]
  - PANCREATITIS [None]
